FAERS Safety Report 7418355-2 (Version None)
Quarter: 2011Q2

REPORT INFORMATION
  Report Type: 
  Country: None (occurrence: None)
  Receive Date: 20110415
  Receipt Date: 20110407
  Transmission Date: 20111010
  Serious: Yes (Other)
  Sender: FDA-Public Use
  Company Number: A0923037A

PATIENT
  Sex: Male

DRUGS (2)
  1. AVODART [Suspect]
     Dosage: .5MG UNKNOWN
     Route: 048
     Dates: start: 20110207, end: 20110401
  2. NONE [Concomitant]

REACTIONS (4)
  - URTICARIA [None]
  - SYNCOPE [None]
  - ANAL PRURITUS [None]
  - VERTIGO [None]
